FAERS Safety Report 4414328-2 (Version None)
Quarter: 2004Q2

REPORT INFORMATION
  Report Type: 
  Country: None (occurrence: None)
  Receive Date: 20040630
  Receipt Date: 20040423
  Transmission Date: 20050107
  Serious: No
  Sender: FDA-Public Use
  Company Number: 04P-163-0255627-00

PATIENT
  Sex: Female
  Weight: 46.2669 kg

DRUGS (5)
  1. HUMIRA [Suspect]
     Dosage: 40 MG, SUBCUTANEOUS
     Route: 058
     Dates: start: 20030501, end: 20040226
  2. PYRIDOXINE HYDROCHLORIDE [Concomitant]
  3. FOLIC ACID [Concomitant]
  4. IRON [Concomitant]
  5. VICODIN [Concomitant]

REACTIONS (1)
  - LUPUS-LIKE SYNDROME [None]
